FAERS Safety Report 4319192-8 (Version None)
Quarter: 2004Q1

REPORT INFORMATION
  Report Type: 
  Country: None (occurrence: None)
  Receive Date: 20040315
  Receipt Date: 20031219
  Transmission Date: 20041129
  Serious: Yes (Other)
  Sender: FDA-Public Use
  Company Number: 2003189745US

PATIENT
  Sex: 0

DRUGS (2)
  1. BEXTRA [Suspect]
     Dosage: ORAL
     Route: 048
  2. ANESTHESIA [Concomitant]

REACTIONS (1)
  - HEPATITIS [None]
